FAERS Safety Report 7459042-4 (Version None)
Quarter: 2011Q2

REPORT INFORMATION
  Report Type: 
  Country: None (occurrence: None)
  Receive Date: 20110505
  Receipt Date: 20110425
  Transmission Date: 20111010
  Serious: Yes (Hospitalization)
  Sender: FDA-Public Use
  Company Number: US-BIOGENIDEC-2008BI031061

PATIENT
  Age: 51 Year
  Sex: Female

DRUGS (4)
  1. AVONEX [Concomitant]
     Dates: start: 20060102
  2. TYSABRI [Suspect]
     Indication: SECONDARY PROGRESSIVE MULTIPLE SCLEROSIS
     Route: 042
     Dates: start: 20060928, end: 20080710
  3. TYSABRI [Suspect]
     Route: 042
     Dates: start: 20081219
  4. AVONEX [Concomitant]
     Indication: MULTIPLE SCLEROSIS
     Dates: start: 20010920, end: 20051130

REACTIONS (2)
  - MULTIPLE SCLEROSIS [None]
  - MULTIPLE SCLEROSIS RELAPSE [None]
